FAERS Safety Report 10519804 (Version 1)
Quarter: 2014Q4

REPORT INFORMATION
  Report Type: Spontaneous
  Country: IT (occurrence: IT)
  Receive Date: 20141015
  Receipt Date: 20141015
  Transmission Date: 20150528
  Serious: Yes (Hospitalization, Other)
  Sender: FDA-Public Use
  Company Number: IT-DSJP-DSE-2014-125363

PATIENT

DRUGS (1)
  1. OLPREZIDE 20 MG/12,5 MG [Suspect]
     Active Substance: HYDROCHLOROTHIAZIDE\OLMESARTAN MEDOXOMIL
     Indication: HYPERTENSION
     Dosage: 20/12.5 MG, QD
     Route: 048
     Dates: start: 20140615, end: 20140714

REACTIONS (4)
  - Syncope [Recovering/Resolving]
  - Vertigo [Recovering/Resolving]
  - Injury [Recovering/Resolving]
  - Hypercreatininaemia [Recovering/Resolving]

NARRATIVE: CASE EVENT DATE: 20140615
